FAERS Safety Report 10239437 (Version 1)
Quarter: 2014Q2

REPORT INFORMATION
  Report Type: Spontaneous
  Country: US (occurrence: US)
  Receive Date: 20140616
  Receipt Date: 20140616
  Transmission Date: 20141212
  Serious: No
  Sender: FDA-Public Use
  Company Number: US-GILEAD-2014-0105266

PATIENT
  Age: 71 Year
  Sex: Female

DRUGS (3)
  1. LETAIRIS [Suspect]
     Indication: PRODUCT USED FOR UNKNOWN INDICATION
     Dosage: 5 MG, QD
     Route: 065
     Dates: start: 20071107
  2. REVATIO [Concomitant]
  3. ALBUTEROL                          /00139501/ [Concomitant]

REACTIONS (4)
  - Asthma [Unknown]
  - Nasopharyngitis [Unknown]
  - Dyspnoea exertional [Unknown]
  - Sinusitis [Unknown]
